FAERS Safety Report 16823651 (Version 2)
Quarter: 2019Q4

REPORT INFORMATION
  Report Type: Spontaneous
  Country: US (occurrence: US)
  Receive Date: 20190918
  Receipt Date: 20191015
  Transmission Date: 20200122
  Serious: No
  Sender: FDA-Public Use
  Company Number: US-TEVA-2019-US-1108045

PATIENT
  Sex: Female

DRUGS (4)
  1. SYNRIBO [Suspect]
     Active Substance: OMACETAXINE MEPESUCCINATE
     Dosage: DOSAGE:1.8MG/0.51ML, BID 14 DAYS
     Route: 065
     Dates: start: 20190720
  2. TYLENOL [Concomitant]
     Active Substance: ACETAMINOPHEN
  3. OXYCODONE [Concomitant]
     Active Substance: OXYCODONE
  4. SYNRIBO [Suspect]
     Active Substance: OMACETAXINE MEPESUCCINATE
     Indication: CHRONIC MYELOID LEUKAEMIA
     Dosage: DOSAGE:1.8MG/0.51ML, BID 14 DAYS
     Route: 065
     Dates: start: 20190904

REACTIONS (2)
  - Injection site bruising [Unknown]
  - Dysphonia [Unknown]

NARRATIVE: CASE EVENT DATE: 2019
